FAERS Safety Report 6216584-7 (Version None)
Quarter: 2009Q2

REPORT INFORMATION
  Report Type: 
  Country: None (occurrence: None)
  Receive Date: 20090605
  Receipt Date: 20090528
  Transmission Date: 20091009
  Serious: No
  Sender: FDA-Public Use
  Company Number: B0569951A

PATIENT

DRUGS (5)
  1. RELENZA [Suspect]
     Indication: DRUG USE FOR UNKNOWN INDICATION
     Dosage: 10MG TWICE PER DAY
     Dates: start: 20090409, end: 20090413
  2. ASVERIN [Concomitant]
     Dosage: 1.2G PER DAY
     Dates: start: 20090409, end: 20090413
  3. MIYA BM [Concomitant]
     Dosage: 3G PER DAY
     Dates: start: 20090409, end: 20090413
  4. ONON [Concomitant]
     Dates: start: 20090409, end: 20090413
  5. CALONAL [Concomitant]
     Indication: ANTIPYRESIS

REACTIONS (1)
  - DRUG EXPOSURE VIA BREAST MILK [None]
